FAERS Safety Report 8780033 (Version 3)
Quarter: 2013Q3

REPORT INFORMATION
  Report Type: Report from Study
  Country: US (occurrence: US)
  Receive Date: 20120912
  Receipt Date: 20130708
  Transmission Date: 20140515
  Serious: Yes (Other)
  Sender: FDA-Public Use
  Company Number: US-VERTEX PHARMACEUTICAL INC.-AE-2012-001741

PATIENT
  Age: 57 Year
  Sex: Female

DRUGS (3)
  1. VX-950 (TELAPREVIR) [Suspect]
     Indication: HEPATITIS C
     Dosage: UNK
     Route: 048
     Dates: start: 20111230, end: 20120103
  2. RIBAVIRIN [Suspect]
     Indication: HEPATITIS C
     Dosage: 1200 MG, QD
     Route: 048
     Dates: start: 20111230
  3. PEGASYS [Suspect]
     Indication: HEPATITIS C
     Dosage: 180 ?G, QW
     Route: 058
     Dates: start: 20111230

REACTIONS (17)
  - Rash vesicular [Unknown]
  - Dizziness [Unknown]
  - Dyspnoea [Unknown]
  - Headache [Unknown]
  - White blood cell count decreased [Unknown]
  - Bronchitis [Not Recovered/Not Resolved]
  - Depression [Unknown]
  - Personality change [Unknown]
  - Dysphonia [Not Recovered/Not Resolved]
  - Irritability [Unknown]
  - Confusional state [Unknown]
  - Cough [Not Recovered/Not Resolved]
  - Skin burning sensation [Unknown]
  - Fatigue [Not Recovered/Not Resolved]
  - Asthenia [Not Recovered/Not Resolved]
  - Anaemia [Not Recovered/Not Resolved]
  - Pruritus [Not Recovered/Not Resolved]
